FAERS Safety Report 6793671-6 (Version None)
Quarter: 2010Q2

REPORT INFORMATION
  Report Type: 
  Country: None (occurrence: None)
  Receive Date: 20100624
  Receipt Date: 20090225
  Transmission Date: 20101027
  Serious: Yes (Hospitalization, Other)
  Sender: FDA-Public Use
  Company Number: US-PFIZER INC-2009164402

PATIENT
  Sex: Male
  Weight: 92.971 kg

DRUGS (5)
  1. GEODON [Suspect]
     Indication: POST-TRAUMATIC STRESS DISORDER
     Dosage: 80 MG, 2X/DAY
     Route: 048
  2. GEODON [Suspect]
     Indication: MAJOR DEPRESSION
  3. CLONAZEPAM [Concomitant]
  4. ZOLPIDEM TARTRATE [Concomitant]
  5. MULTI-VITAMINS [Concomitant]

REACTIONS (2)
  - DYSTONIA [None]
  - SINUS TACHYCARDIA [None]
